FAERS Safety Report 7379882-X (Version None)
Quarter: 2011Q1

REPORT INFORMATION
  Report Type: 
  Country: None (occurrence: None)
  Receive Date: 20110329
  Receipt Date: 20110317
  Transmission Date: 20110831
  Serious: Yes (Other)
  Sender: FDA-Public Use
  Company Number: SE-SANOFI-AVENTIS-2011SA000674

PATIENT
  Age: 70 Year
  Sex: Male

DRUGS (11)
  1. METOPROLOL [Concomitant]
     Indication: ATRIAL FIBRILLATION
  2. ETALPHA [Concomitant]
  3. PAROXETINE HCL [Concomitant]
  4. MULTAQ [Suspect]
     Indication: ATRIAL FIBRILLATION
     Route: 048
     Dates: start: 20101230, end: 20110105
  5. ENALAPRIL MALEATE [Concomitant]
     Indication: HYPERTENSION
  6. SIMVASTATIN [Concomitant]
  7. CETIRIZINE [Concomitant]
  8. TERRACORTRIL MED POLYMYXIN B [Concomitant]
  9. WARAN [Concomitant]
     Indication: ATRIAL FIBRILLATION
     Dosage: VARIOUS DOSES
  10. METOPROLOL [Concomitant]
  11. ALLOPURINOL [Concomitant]
     Indication: GOUT

REACTIONS (3)
  - BLOOD CREATININE INCREASED [None]
  - GLOMERULAR FILTRATION RATE DECREASED [None]
  - RENAL FAILURE [None]
